FAERS Safety Report 22076102 (Version 2)
Quarter: 2023Q1

REPORT INFORMATION
  Report Type: Spontaneous
  Country: JP (occurrence: JP)
  Receive Date: 20230308
  Receipt Date: 20230329
  Transmission Date: 20230417
  Serious: Yes (Hospitalization, Other)
  Sender: FDA-Public Use
  Company Number: JP-ONO-2022JP008954

PATIENT
  Age: 73 Year
  Sex: Male
  Weight: 52.6 kg

DRUGS (6)
  1. OPDIVO [Suspect]
     Active Substance: NIVOLUMAB
     Indication: Gastric cancer
     Route: 041
     Dates: start: 20220218
  2. OPDIVO [Suspect]
     Active Substance: NIVOLUMAB
     Dosage: 2ND COURSE OF OPDIVO + SOX THERAPY WAS STARTED
     Route: 041
     Dates: start: 20220311
  3. TS-1 [Suspect]
     Active Substance: GIMERACIL\OTERACIL\TEGAFUR
     Indication: Gastric cancer
     Dosage: [S-1, 60 MG X 2/DAY] ?ON 11 MAR 2022, THE 2ND COURSE OF OPDIVO + SOX THERAPY WAS STARTED. ON 28 MAR
     Route: 048
     Dates: start: 20220218
  4. TS-1 [Suspect]
     Active Substance: GIMERACIL\OTERACIL\TEGAFUR
     Dosage: UNK
     Dates: start: 20220311
  5. OXALIPLATIN [Concomitant]
     Active Substance: OXALIPLATIN
     Indication: Gastric cancer
     Dosage: ON 11 MAR 2022, THE 2ND COURSE OF OPDIVO + SOX THERAPY WAS STARTED. ON 28 MAR 2022, IN THE 6TH WEEK
     Route: 042
     Dates: start: 20220218
  6. OXALIPLATIN [Concomitant]
     Active Substance: OXALIPLATIN
     Route: 042
     Dates: start: 20220311

REACTIONS (3)
  - Mucosal disorder [Recovered/Resolved]
  - Immune-mediated enterocolitis [Recovered/Resolved]
  - Enteritis [Unknown]

NARRATIVE: CASE EVENT DATE: 20220101
